FAERS Safety Report 20017648 (Version 1)
Quarter: 2021Q4

REPORT INFORMATION
  Report Type: Spontaneous
  Country: FR (occurrence: FR)
  Receive Date: 20211031
  Receipt Date: 20211031
  Transmission Date: 20220303
  Serious: Yes (Other)
  Sender: FDA-Public Use
  Company Number: FR-NOVARTISPH-NVSC2021FR245869

PATIENT
  Sex: Female

DRUGS (2)
  1. CAPMATINIB [Suspect]
     Active Substance: CAPMATINIB
     Indication: Product used for unknown indication
     Dosage: 400 MG, QD
     Route: 065
     Dates: start: 20210909
  2. OSIMERTINIB [Concomitant]
     Active Substance: OSIMERTINIB
     Indication: Product used for unknown indication
     Dosage: 80 MG, QD
     Route: 065

REACTIONS (4)
  - Metastases to liver [Unknown]
  - Disease progression [Unknown]
  - Metastases to peripheral nervous system [Unknown]
  - Metastases to central nervous system [Unknown]
